FAERS Safety Report 5002347-7 (Version None)
Quarter: 2006Q2

REPORT INFORMATION
  Report Type: 
  Country: None (occurrence: None)
  Receive Date: 20060512
  Receipt Date: 20060428
  Transmission Date: 20061013
  Serious: Yes (Other)
  Sender: FDA-Public Use
  Company Number: 220640

PATIENT
  Age: 36 Year
  Sex: Female

DRUGS (3)
  1. XOLAIR [Suspect]
     Indication: ASTHMA
     Dosage: 300 MG, SINGLE, SUBCUTANEOUS
     Route: 058
     Dates: start: 20051112, end: 20051210
  2. SYMBICORT (BUDESONIDE, FORMOTEROL FUMARATE) [Concomitant]
  3. NASONEX [Concomitant]

REACTIONS (8)
  - ANGIONEUROTIC OEDEMA [None]
  - BRONCHOSPASM [None]
  - CHEST DISCOMFORT [None]
  - DIZZINESS [None]
  - ERYTHEMA [None]
  - HEADACHE [None]
  - THROAT TIGHTNESS [None]
  - URTICARIA [None]
